FAERS Safety Report 16882678 (Version 1)
Quarter: 2019Q4

REPORT INFORMATION
  Report Type: Spontaneous
  Country: IT (occurrence: IT)
  Receive Date: 20191003
  Receipt Date: 20191003
  Transmission Date: 20200122
  Serious: Yes (Hospitalization)
  Sender: FDA-Public Use
  Company Number: IT-TEVA-2019-IT-1116084

PATIENT
  Age: 91 Year
  Sex: Male

DRUGS (8)
  1. UROREC [Concomitant]
     Active Substance: SILODOSIN
  2. COUMADIN [Suspect]
     Active Substance: WARFARIN SODIUM
     Dates: start: 20190101, end: 20190525
  3. LASIX [Concomitant]
     Active Substance: FUROSEMIDE
  4. CLOPIDOGREL [Suspect]
     Active Substance: CLOPIDOGREL BISULFATE
     Dates: start: 20190101, end: 20190525
  5. MEDROL [Concomitant]
     Active Substance: METHYLPREDNISOLONE
  6. BISOPROLOL FUMARATE. [Concomitant]
     Active Substance: BISOPROLOL FUMARATE
  7. KANRENOL [Concomitant]
     Active Substance: CANRENOATE POTASSIUM
  8. ATARAX [Concomitant]
     Active Substance: HYDROXYZINE HYDROCHLORIDE

REACTIONS (2)
  - Gastrointestinal haemorrhage [Unknown]
  - Shock haemorrhagic [Unknown]

NARRATIVE: CASE EVENT DATE: 20190525
